FAERS Safety Report 4462489-1 (Version None)
Quarter: 2004Q3

REPORT INFORMATION
  Report Type: 
  Country: None (occurrence: None)
  Receive Date: 20040924
  Receipt Date: 20040914
  Transmission Date: 20050211
  Serious: Yes (Hospitalization, Other)
  Sender: FDA-Public Use
  Company Number: HQWYE453815JUN04

PATIENT
  Age: 44 Year
  Sex: Female
  Weight: 63.2 kg

DRUGS (21)
  1. RAPAMUNE [Suspect]
     Indication: PROPHYLAXIS AGAINST TRANSPLANT REJECTION
     Dosage: SEE IMAGE ORAL
     Route: 048
     Dates: end: 20040623
  2. RAPAMUNE [Suspect]
     Indication: PROPHYLAXIS AGAINST TRANSPLANT REJECTION
     Dosage: SEE IMAGE ORAL
     Route: 048
     Dates: start: 20040323
  3. RAPAMUNE [Suspect]
     Indication: PROPHYLAXIS AGAINST TRANSPLANT REJECTION
     Dosage: SEE IMAGE ORAL
     Route: 048
     Dates: start: 20040624
  4. NEORAL [Suspect]
     Indication: PROPHYLAXIS AGAINST TRANSPLANT REJECTION
     Dosage: 150 MG 1X PER 1 DAY, ORAL
     Route: 048
     Dates: start: 20040629
  5. PREDNISONE [Concomitant]
  6. VALCYTE [Concomitant]
  7. DAPSONE [Concomitant]
  8. NYSTATIN [Concomitant]
  9. MULTIVIT (VITAMINS NOS) [Concomitant]
  10. FOLIC ACID [Concomitant]
  11. PROTONIX [Concomitant]
  12. LOPRESSOR [Concomitant]
  13. CATAPRES [Concomitant]
  14. PROCARDIA [Concomitant]
  15. FUROSEMIDE [Concomitant]
  16. PROZAC [Concomitant]
  17. EPOGEN [Concomitant]
  18. PREMARIN [Concomitant]
  19. ATENOLOL [Concomitant]
  20. NORVASC [Concomitant]
  21. METOPROLOL TARTRATE [Concomitant]

REACTIONS (18)
  - ABDOMINAL DISCOMFORT [None]
  - ANAEMIA [None]
  - BLADDER DISTENSION [None]
  - BLOOD IRON INCREASED [None]
  - CHOLECYSTITIS [None]
  - DIARRHOEA [None]
  - DRUG INEFFECTIVE [None]
  - GALLBLADDER OEDEMA [None]
  - GRANULOMA [None]
  - HAEMATURIA [None]
  - ILEUS [None]
  - KIDNEY TRANSPLANT REJECTION [None]
  - POST PROCEDURAL HAEMORRHAGE [None]
  - RENAL TUBULAR NECROSIS [None]
  - THROMBOCYTOPENIA [None]
  - THROMBOTIC MICROANGIOPATHY [None]
  - URINARY TRACT INFECTION ENTEROCOCCAL [None]
  - VOMITING [None]
